FAERS Safety Report 16584992 (Version 2)
Quarter: 2019Q3

REPORT INFORMATION
  Report Type: Spontaneous
  Country: US (occurrence: US)
  Receive Date: 20190717
  Receipt Date: 20190812
  Transmission Date: 20191004
  Serious: No
  Sender: FDA-Public Use
  Company Number: US-APOTEX-2019AP017458

PATIENT
  Sex: Male

DRUGS (1)
  1. MOMETASONE FUROATE NASAL SPRAY [Suspect]
     Active Substance: MOMETASONE FUROATE
     Indication: PRODUCT USED FOR UNKNOWN INDICATION
     Dosage: UNK, 2 SPRAYS EACH NOSTRIL DAILY
     Route: 045

REACTIONS (3)
  - Product quality issue [Unknown]
  - Underdose [Unknown]
  - Overdose [Unknown]
